FAERS Safety Report 16872554 (Version 6)
Quarter: 2021Q1

REPORT INFORMATION
  Report Type: Spontaneous
  Country: US (occurrence: US)
  Receive Date: 20191001
  Receipt Date: 20210108
  Transmission Date: 20210419
  Serious: Yes (Other)
  Sender: FDA-Public Use
  Company Number: US-GILEAD-2019-0430950

PATIENT
  Age: 56 Year
  Sex: Male
  Weight: 88.44 kg

DRUGS (44)
  1. NASONEX [Concomitant]
     Active Substance: MOMETASONE FUROATE
  2. STROVITE ONE [Concomitant]
     Active Substance: MINERALS\VITAMINS
  3. ALBUTEROL SULFATE. [Concomitant]
     Active Substance: ALBUTEROL SULFATE
  4. LAC?HYDRIN [Concomitant]
     Active Substance: AMMONIUM LACTATE
  5. VITAMIN D3 [Concomitant]
     Active Substance: CHOLECALCIFEROL
  6. HEPATITIS B VACCINE [Concomitant]
     Active Substance: HEPATITIS B VIRUS VACCINE
  7. ASPIRIN (E.C.) [Concomitant]
     Active Substance: ASPIRIN
  8. LORATADINE. [Concomitant]
     Active Substance: LORATADINE
  9. REMERON [Concomitant]
     Active Substance: MIRTAZAPINE
  10. VIAGRA [Concomitant]
     Active Substance: SILDENAFIL CITRATE
  11. INFLUENZA VACCINE [Concomitant]
     Active Substance: INFLUENZA VIRUS VACCINE
  12. TRUVADA [Suspect]
     Active Substance: EMTRICITABINE\TENOFOVIR DISOPROXIL FUMARATE
     Dosage: UNK
     Route: 065
     Dates: start: 2005, end: 2015
  13. DESCOVY [Concomitant]
     Active Substance: EMTRICITABINE\TENOFOVIR ALAFENAMIDE FUMARATE
  14. IBUPROFEN. [Concomitant]
     Active Substance: IBUPROFEN
  15. MULTIVITAMINUM [Concomitant]
     Active Substance: VITAMINS
  16. TETRACYCLINE [Concomitant]
     Active Substance: TETRACYCLINE
  17. PREZISTA [Concomitant]
     Active Substance: DARUNAVIR ETHANOLATE
     Indication: HIV INFECTION
     Dosage: UNK
     Dates: start: 20120419, end: 20121009
  18. RANITIDINE. [Concomitant]
     Active Substance: RANITIDINE
  19. FAMOTIDINE. [Concomitant]
     Active Substance: FAMOTIDINE
  20. NICODERM CQ [Concomitant]
     Active Substance: NICOTINE
  21. FLOMAX [Concomitant]
     Active Substance: TAMSULOSIN HYDROCHLORIDE
  22. ACETAMINOPHEN. [Concomitant]
     Active Substance: ACETAMINOPHEN
  23. PREDNISONE. [Concomitant]
     Active Substance: PREDNISONE
  24. ISENTRESS [Concomitant]
     Active Substance: RALTEGRAVIR POTASSIUM
     Indication: HIV INFECTION
     Dosage: UNK
     Dates: start: 20130227, end: 20130415
  25. CLARINEX [LORATADINE;PSEUDOEPHEDRINE SULFATE] [Concomitant]
  26. PROAIR [FLUTICASONE PROPIONATE] [Concomitant]
     Active Substance: FLUTICASONE PROPIONATE
  27. DOXYCYCLINE HYCLATE. [Concomitant]
     Active Substance: DOXYCYCLINE HYCLATE
  28. PENICILLIN [PENICILLIN NOS] [Concomitant]
     Active Substance: PENICILLIN
  29. TRAMADOL. [Concomitant]
     Active Substance: TRAMADOL
  30. CRESTOR [Concomitant]
     Active Substance: ROSUVASTATIN CALCIUM
  31. VALIUM [Concomitant]
     Active Substance: DIAZEPAM
     Indication: MENTAL DISORDER
     Dosage: UNK
     Dates: start: 201801
  32. TIVICAY [Concomitant]
     Active Substance: DOLUTEGRAVIR SODIUM
  33. ZYRTEC [Concomitant]
     Active Substance: CETIRIZINE HYDROCHLORIDE
  34. XANAX [Concomitant]
     Active Substance: ALPRAZOLAM
     Indication: MENTAL DISORDER
     Dosage: UNK
     Dates: start: 201801
  35. BACTRIM [Concomitant]
     Active Substance: SULFAMETHOXAZOLE\TRIMETHOPRIM
  36. TEMAZEPAM. [Concomitant]
     Active Substance: TEMAZEPAM
  37. AZITHROMYCIN ANHYDROUS. [Concomitant]
     Active Substance: AZITHROMYCIN ANHYDROUS
  38. VITA S [Concomitant]
  39. FLONASE [Concomitant]
     Active Substance: FLUTICASONE PROPIONATE
  40. TRUVADA [Suspect]
     Active Substance: EMTRICITABINE\TENOFOVIR DISOPROXIL FUMARATE
     Indication: HIV INFECTION
     Dosage: UNK
     Route: 048
     Dates: start: 20090527, end: 20130415
  41. NORVIR [Concomitant]
     Active Substance: RITONAVIR
     Indication: HIV INFECTION
     Dosage: UNK
     Dates: start: 20090128, end: 20120723
  42. REYATAZ [Concomitant]
     Active Substance: ATAZANAVIR SULFATE
     Indication: HIV INFECTION
     Dosage: UNK
     Dates: start: 20090128, end: 20120123
  43. AMOXICILLIN. [Concomitant]
     Active Substance: AMOXICILLIN
  44. PNEUMOCOCCAL VACCINE 13V [Concomitant]

REACTIONS (10)
  - Vitamin D deficiency [Not Recovered/Not Resolved]
  - Emotional distress [Unknown]
  - Pain [Unknown]
  - Acute kidney injury [Not Recovered/Not Resolved]
  - Bone density decreased [Unknown]
  - Anxiety [Not Recovered/Not Resolved]
  - Renal failure [Recovered/Resolved]
  - Anhedonia [Unknown]
  - Tooth loss [Unknown]
  - Economic problem [Unknown]

NARRATIVE: CASE EVENT DATE: 201701
